FAERS Safety Report 16984390 (Version 1)
Quarter: 2019Q4

REPORT INFORMATION
  Report Type: Spontaneous
  Country: US (occurrence: US)
  Receive Date: 20191101
  Receipt Date: 20191101
  Transmission Date: 20200122
  Serious: No
  Sender: FDA-Public Use
  Company Number: US-FARMAPROD-201908-1268

PATIENT
  Sex: Male

DRUGS (1)
  1. OXERVATE [Suspect]
     Active Substance: CENEGERMIN-BKBJ
     Route: 047

REACTIONS (5)
  - Eye pain [Unknown]
  - Eye oedema [Unknown]
  - Sleep disorder [Unknown]
  - Product use issue [Unknown]
  - Intraocular pressure increased [Unknown]
